FAERS Safety Report 16795501 (Version 1)
Quarter: 2019Q3

REPORT INFORMATION
  Report Type: Spontaneous
  Country: IT (occurrence: IT)
  Receive Date: 20190911
  Receipt Date: 20190911
  Transmission Date: 20191005
  Serious: Yes (Other)
  Sender: FDA-Public Use
  Company Number: IT-PFIZER INC-2019392592

PATIENT
  Age: 38 Year
  Sex: Male
  Weight: 85 kg

DRUGS (3)
  1. RISPERDAL [Suspect]
     Active Substance: RISPERIDONE
     Dosage: 1 MG, UNK
     Route: 048
  2. XANAX [Suspect]
     Active Substance: ALPRAZOLAM
     Dosage: 1 MG, UNK
     Route: 048
  3. LAMOTRIGINA ARROW [Suspect]
     Active Substance: LAMOTRIGINE
     Dosage: 100 MG, UNK
     Route: 048

REACTIONS (1)
  - Intentional self-injury [Unknown]
